FAERS Safety Report 6943413-6 (Version None)
Quarter: 2010Q3

REPORT INFORMATION
  Report Type: 
  Country: None (occurrence: None)
  Receive Date: 20100826
  Receipt Date: 20100817
  Transmission Date: 20110219
  Serious: Yes (Other)
  Sender: FDA-Public Use
  Company Number: US-AMGEN-KDL432150

PATIENT
  Sex: Female

DRUGS (1)
  1. ENBREL [Suspect]
     Indication: PSORIASIS
     Route: 058
     Dates: start: 20100624

REACTIONS (13)
  - COUGH [None]
  - DEPRESSION [None]
  - HEADACHE [None]
  - INCREASED UPPER AIRWAY SECRETION [None]
  - INJECTION SITE ERYTHEMA [None]
  - INJECTION SITE PRURITUS [None]
  - INJECTION SITE SWELLING [None]
  - INJECTION SITE WARMTH [None]
  - INSOMNIA [None]
  - NASOPHARYNGITIS [None]
  - RASH MACULAR [None]
  - STRESS [None]
  - URTICARIA [None]
